FAERS Safety Report 13608271 (Version 1)
Quarter: 2017Q2

REPORT INFORMATION
  Report Type: Spontaneous
  Country: US (occurrence: US)
  Receive Date: 20170602
  Receipt Date: 20170602
  Transmission Date: 20170830
  Serious: No
  Sender: FDA-Public Use
  Company Number: US-PERRIGO-16US017150

PATIENT
  Age: 41 Year
  Sex: Male
  Weight: 64.4 kg

DRUGS (4)
  1. PERMETHRIN. [Suspect]
     Active Substance: PERMETHRIN
     Dosage: GENEROUS AMOUNT, SINGLE
     Route: 061
     Dates: start: 20160510, end: 20160510
  2. PRILOSEC [Concomitant]
     Active Substance: OMEPRAZOLE MAGNESIUM
     Indication: DYSPEPSIA
     Dosage: UNK
     Route: 065
  3. PERMETHRIN. [Suspect]
     Active Substance: PERMETHRIN
     Dosage: GENEROUS AMOUNT, SINGLE
     Route: 061
     Dates: start: 201606, end: 201606
  4. PERMETHRIN. [Suspect]
     Active Substance: PERMETHRIN
     Indication: ACARODERMATITIS
     Dosage: GENEROUS AMOUNT, SINGLE
     Route: 061
     Dates: start: 20160504, end: 20160504

REACTIONS (2)
  - Drug ineffective [Unknown]
  - Inappropriate schedule of drug administration [Recovered/Resolved]

NARRATIVE: CASE EVENT DATE: 20160504
